FAERS Safety Report 21221049 (Version 2)
Quarter: 2023Q2

REPORT INFORMATION
  Report Type: Spontaneous
  Country: US (occurrence: US)
  Receive Date: 20220817
  Receipt Date: 20230510
  Transmission Date: 20230722
  Serious: No
  Sender: FDA-Public Use
  Company Number: US-BRISTOL-MYERS SQUIBB COMPANY-2022-091007

PATIENT
  Age: 88 Year
  Sex: Female
  Weight: 125 kg

DRUGS (16)
  1. REVLIMID [Suspect]
     Active Substance: LENALIDOMIDE
     Indication: Leukaemia
     Route: 048
  2. REVLIMID [Suspect]
     Active Substance: LENALIDOMIDE
     Route: 048
     Dates: start: 20230217
  3. LOSARTAN POTASSIUM [Concomitant]
     Active Substance: LOSARTAN POTASSIUM
     Indication: Product used for unknown indication
     Route: 048
  4. CARVEDILOL [Concomitant]
     Active Substance: CARVEDILOL
     Indication: Product used for unknown indication
     Route: 048
  5. GABAPENTIN [Concomitant]
     Active Substance: GABAPENTIN
     Indication: Product used for unknown indication
     Route: 048
  6. METFORMIN HYDROCHLORIDE [Concomitant]
     Active Substance: METFORMIN HYDROCHLORIDE
     Indication: Product used for unknown indication
     Route: 048
  7. TERAZOSIN [Concomitant]
     Active Substance: TERAZOSIN HYDROCHLORIDE
     Indication: Product used for unknown indication
     Route: 048
  8. BUMETANIDE [Concomitant]
     Active Substance: BUMETANIDE
     Indication: Product used for unknown indication
     Route: 048
  9. TRULANCE [Concomitant]
     Active Substance: PLECANATIDE
     Indication: Product used for unknown indication
     Route: 048
  10. LEVOTHYROXINE [Concomitant]
     Active Substance: LEVOTHYROXINE
     Indication: Product used for unknown indication
     Dosage: DOSE : 75 MCG
     Route: 048
  11. ASCORBIC ACID [Concomitant]
     Active Substance: ASCORBIC ACID
     Indication: Product used for unknown indication
     Route: 048
  12. GLUCOSAMINE and CHONDROITIN PLUS [CHONDROITIN SULFATE SODIUM;GLUCOSAMI [Concomitant]
     Indication: Product used for unknown indication
     Route: 048
  13. VITRON C [ASCORBIC ACID;IRON PENTACARBONYL] [Concomitant]
     Indication: Product used for unknown indication
     Dosage: DOSE : 65-125 MG
     Route: 048
  14. WARFARIN SODIUM [Concomitant]
     Active Substance: WARFARIN SODIUM
     Indication: Product used for unknown indication
     Route: 048
  15. TYLENOL [Concomitant]
     Active Substance: ACETAMINOPHEN
     Indication: Product used for unknown indication
     Route: 048
  16. OXYCODONE [Concomitant]
     Active Substance: OXYCODONE
     Indication: Product used for unknown indication
     Route: 048

REACTIONS (3)
  - Full blood count decreased [Recovered/Resolved]
  - Intentional product use issue [Unknown]
  - Rash [Recovering/Resolving]
